APPROVED DRUG PRODUCT: CYCLAPEN-W
Active Ingredient: CYCLACILLIN
Strength: 500MG/5ML
Dosage Form/Route: FOR SUSPENSION;ORAL
Application: N050508 | Product #003
Applicant: WYETH AYERST LABORATORIES
Approved: Approved Prior to Jan 1, 1982 | RLD: No | RS: No | Type: DISCN